FAERS Safety Report 9658049 (Version 3)
Quarter: 2013Q4

REPORT INFORMATION
  Report Type: Report from Study
  Country: BR (occurrence: BR)
  Receive Date: 20131030
  Receipt Date: 20131106
  Transmission Date: 20140711
  Serious: Yes (Other)
  Sender: FDA-Public Use
  Company Number: BR-ABBVIE-13P-020-1126933-00

PATIENT
  Age: 36 Year
  Sex: Male
  Weight: 97 kg

DRUGS (2)
  1. HUMIRA [Suspect]
     Indication: ANKYLOSING SPONDYLITIS
     Route: 058
  2. HUMIRA [Suspect]

REACTIONS (4)
  - Joint injury [Recovering/Resolving]
  - Road traffic accident [Not Recovered/Not Resolved]
  - Abasia [Unknown]
  - Bedridden [Recovered/Resolved]
